FAERS Safety Report 23658449 (Version 1)
Quarter: 2024Q1

REPORT INFORMATION
  Report Type: Spontaneous
  Country: US (occurrence: None)
  Receive Date: 20240320
  Receipt Date: 20240320
  Transmission Date: 20240410
  Serious: Yes (Other)
  Sender: FDA-Public Use
  Company Number: None

PATIENT
  Age: 54 Year
  Sex: Female
  Weight: 60.75 kg

DRUGS (2)
  1. PHENYLEPHRINE [Suspect]
     Active Substance: PHENYLEPHRINE HYDROCHLORIDE
     Indication: Nasal congestion
  2. AZELASTINE [Suspect]
     Active Substance: AZELASTINE\AZELASTINE HYDROCHLORIDE

REACTIONS (3)
  - Drug ineffective [None]
  - Rebound nasal congestion [None]
  - Product advertising issue [None]

NARRATIVE: CASE EVENT DATE: 20240318
